FAERS Safety Report 17115823 (Version 1)
Quarter: 2019Q4

REPORT INFORMATION
  Report Type: Spontaneous
  Country: CO (occurrence: CO)
  Receive Date: 20191205
  Receipt Date: 20191205
  Transmission Date: 20200122
  Serious: Yes (Other)
  Sender: FDA-Public Use
  Company Number: CO-EMD SERONO-9132653

PATIENT
  Age: 70 Year
  Sex: Male
  Weight: 80 kg

DRUGS (8)
  1. METFORMIN [Suspect]
     Active Substance: METFORMIN HYDROCHLORIDE
     Indication: DIABETES MELLITUS
     Route: 048
  2. REVOLADE [Suspect]
     Active Substance: ELTROMBOPAG
     Route: 048
  3. REVOLADE [Suspect]
     Active Substance: ELTROMBOPAG
     Route: 048
  4. ENALAPRIL [Suspect]
     Active Substance: ENALAPRIL
     Indication: HYPERTENSION
     Route: 048
  5. REVOLADE [Suspect]
     Active Substance: ELTROMBOPAG
     Indication: IMMUNE THROMBOCYTOPENIC PURPURA
     Route: 048
     Dates: start: 20110103
  6. REVOLADE [Suspect]
     Active Substance: ELTROMBOPAG
     Route: 048
  7. REVOLADE [Suspect]
     Active Substance: ELTROMBOPAG
     Route: 048
     Dates: start: 20170510
  8. REVOLADE [Suspect]
     Active Substance: ELTROMBOPAG
     Route: 048

REACTIONS (3)
  - Platelet count decreased [Recovering/Resolving]
  - Headache [Unknown]
  - Feeling of despair [Unknown]

NARRATIVE: CASE EVENT DATE: 201609
